FAERS Safety Report 15225041 (Version 3)
Quarter: 2018Q3

REPORT INFORMATION
  Report Type: Report from Study
  Country: None (occurrence: IT)
  Receive Date: 20180801
  Receipt Date: 20180827
  Transmission Date: 20181010
  Serious: Yes (Hospitalization)
  Sender: FDA-Public Use
  Company Number: IT-ABBVIE-18S-083-2437279-00

PATIENT
  Age: 76 Year
  Sex: Female

DRUGS (1)
  1. DUODOPA [Suspect]
     Active Substance: CARBIDOPA\LEVODOPA
     Indication: PARKINSON^S DISEASE
     Dosage: MD 4.6+3??CR 1.8??ED 1
     Route: 050
     Dates: start: 20171016

REACTIONS (3)
  - Head injury [Recovering/Resolving]
  - Cerebral haemorrhage [Recovering/Resolving]
  - Fall [Recovering/Resolving]

NARRATIVE: CASE EVENT DATE: 20180730
